FAERS Safety Report 20394940 (Version 1)
Quarter: 2022Q1

REPORT INFORMATION
  Report Type: Spontaneous
  Country: NZ (occurrence: NZ)
  Receive Date: 20220130
  Receipt Date: 20220130
  Transmission Date: 20220423
  Serious: Yes (Death)
  Sender: FDA-Public Use
  Company Number: None

PATIENT
  Sex: Female

DRUGS (1)
  1. ZEPZELCA [Suspect]
     Active Substance: LURBINECTEDIN
     Indication: Product used for unknown indication
     Dosage: UNK
     Dates: start: 20200203

REACTIONS (2)
  - Disease progression [Fatal]
  - Therapy non-responder [Unknown]

NARRATIVE: CASE EVENT DATE: 20200101
